FAERS Safety Report 24180370 (Version 1)
Quarter: 2024Q3

REPORT INFORMATION
  Report Type: Spontaneous
  Country: US (occurrence: US)
  Receive Date: 20240806
  Receipt Date: 20240806
  Transmission Date: 20241017
  Serious: No
  Sender: SANOFI AVENTIS
  Company Number: US-SA-SAC20240731001478

PATIENT
  Age: 56 Year
  Sex: Female

DRUGS (1)
  1. DUPIXENT [Suspect]
     Active Substance: DUPILUMAB
     Indication: Nasal polyps
     Dosage: 300 MG, QOW
     Route: 058
     Dates: start: 201910

REACTIONS (8)
  - Inflammation [Unknown]
  - Balance disorder [Unknown]
  - Fall [Unknown]
  - Joint injury [Unknown]
  - Dizziness [Unknown]
  - Vertigo [Unknown]
  - Erythema [Unknown]
  - Arthralgia [Unknown]

NARRATIVE: CASE EVENT DATE: 20240701
